FAERS Safety Report 6853813-0 (Version None)
Quarter: 2010Q3

REPORT INFORMATION
  Report Type: 
  Country: None (occurrence: None)
  Receive Date: 20100717
  Receipt Date: 20071218
  Transmission Date: 20110219
  Serious: No
  Sender: FDA-Public Use
  Company Number: US-PFIZER INC-2007106680

PATIENT
  Sex: Female
  Weight: 84.09 kg

DRUGS (10)
  1. CHANTIX [Suspect]
     Indication: SMOKING CESSATION THERAPY
     Dates: start: 20071101, end: 20071201
  2. SYNTHROID [Concomitant]
     Indication: THYROID DISORDER
  3. LIPITOR [Concomitant]
     Indication: BLOOD CHOLESTEROL INCREASED
  4. TRICOR [Concomitant]
  5. GUANETHIDINE SULFATE [Concomitant]
  6. MONTELUKAST SODIUM [Concomitant]
  7. CALCIUM [Concomitant]
  8. LOVAZA [Concomitant]
  9. ACETYLSALICYLIC ACID [Concomitant]
  10. ALL OTHER THERAPEUTIC PRODUCTS [Concomitant]

REACTIONS (2)
  - MEMORY IMPAIRMENT [None]
  - NAUSEA [None]
